FAERS Safety Report 5535084-0 (Version None)
Quarter: 2007Q4

REPORT INFORMATION
  Report Type: 
  Country: None (occurrence: None)
  Receive Date: 20071203
  Receipt Date: 20071115
  Transmission Date: 20080405
  Serious: Yes (Other)
  Sender: FDA-Public Use
  Company Number: 2007EU002559

PATIENT
  Sex: Female

DRUGS (1)
  1. PROGRAF [Suspect]
     Indication: RENAL TRANSPLANT
     Dosage: /D, ORAL
     Route: 048

REACTIONS (2)
  - BRAIN SCAN ABNORMAL [None]
  - NEURODEGENERATIVE DISORDER [None]
